FAERS Safety Report 7297026-X (Version None)
Quarter: 2011Q1

REPORT INFORMATION
  Report Type: 
  Country: None (occurrence: None)
  Receive Date: 20110216
  Receipt Date: 20110124
  Transmission Date: 20110831
  Serious: No
  Sender: FDA-Public Use
  Company Number: US-B.I. PHARMACEUTICALS,INC./RIDGEFIELD-2010-BP-13476BP

PATIENT
  Sex: Female

DRUGS (7)
  1. ATENOLOL [Concomitant]
  2. SYNTHROID [Concomitant]
  3. SINGULAIR [Concomitant]
  4. ZOCOR [Concomitant]
  5. MICARDIS [Concomitant]
  6. PRADAXA [Suspect]
     Indication: ATRIAL FIBRILLATION
     Dosage: 300 MG
  7. PROTONIX [Concomitant]

REACTIONS (4)
  - DYSPEPSIA [None]
  - ABDOMINAL PAIN UPPER [None]
  - HAEMOPTYSIS [None]
  - ODYNOPHAGIA [None]
